FAERS Safety Report 4278940-6 (Version None)
Quarter: 2004Q1

REPORT INFORMATION
  Report Type: 
  Country: None (occurrence: None)
  Receive Date: 20040126
  Receipt Date: 20021119
  Transmission Date: 20041129
  Serious: Yes (Death, Hospitalization)
  Sender: FDA-Public Use
  Company Number: BE-ROCHE-325952

PATIENT
  Age: 67 Year
  Sex: Female
  Weight: 74.5 kg

DRUGS (5)
  1. DACLIZUMAB [Suspect]
     Route: 042
     Dates: start: 20020618, end: 20020618
  2. DACLIZUMAB [Suspect]
     Route: 042
     Dates: start: 20020702, end: 20020813
  3. MYCOPHENOLATE MOFETIL [Suspect]
     Route: 048
     Dates: start: 20020619, end: 20030717
  4. NEORAL [Suspect]
     Route: 065
     Dates: start: 20020920
  5. DELTA-CORTISONE [Suspect]
     Route: 065
     Dates: start: 20020820, end: 20030717

REACTIONS (6)
  - BALANCE DISORDER [None]
  - CENTRAL NERVOUS SYSTEM LYMPHOMA [None]
  - CYTOMEGALOVIRUS INFECTION [None]
  - DIFFUSE LARGE B-CELL LYMPHOMA [None]
  - EYE DISORDER [None]
  - INTESTINAL OBSTRUCTION [None]
